FAERS Safety Report 9549377 (Version 1)
Quarter: 2013Q3

REPORT INFORMATION
  Report Type: Spontaneous
  Country: BR (occurrence: None)
  Receive Date: 20130919
  Receipt Date: 20130919
  Transmission Date: 20140515
  Serious: Yes (Other)
  Sender: FDA-Public Use
  Company Number: DSU-2013-04513

PATIENT
  Sex: Female

DRUGS (3)
  1. OLMETEC HCT (HYDROCHLOROTHIAZIDE, OLMESARTAN MEDOXOMIL) (TABLET) (HYDROCHLOROTHIAZIDE, OLMESARTAN MEDOXOMIL) [Suspect]
     Indication: HYPERTENSION
     Route: 048
  2. OLMETEC ANLO (OLMESARTAN MEDOXOMIL, AMLODIPINE BESILATE) (TABLET) (OLMESARTAN MEDOXOMIL, AMLODIPINE BESILATE) [Suspect]
     Indication: HYPERTENSION
     Route: 048
  3. LOSARTAN [Suspect]
     Indication: HYPERTENSION
     Dosage: 3 DOSAGE FORMS (1 DOSAGE FORMS, TID) PER ORAL
     Route: 048

REACTIONS (6)
  - Swelling [None]
  - Ill-defined disorder [None]
  - Abasia [None]
  - Syncope [None]
  - Feeling abnormal [None]
  - Blood pressure inadequately controlled [None]
